FAERS Safety Report 6242635-X (Version None)
Quarter: 2009Q2

REPORT INFORMATION
  Report Type: 
  Country: None (occurrence: None)
  Receive Date: 20090624
  Receipt Date: 20090618
  Transmission Date: 20091009
  Serious: Yes (Other)
  Sender: FDA-Public Use
  Company Number: NL-JNJFOC-20090604006

PATIENT
  Sex: Male

DRUGS (7)
  1. CONCERTA [Suspect]
  2. CONCERTA [Suspect]
     Indication: DRUG USE FOR UNKNOWN INDICATION
  3. SIMVASTATIN [Concomitant]
  4. METFORMIN HCL [Concomitant]
  5. HYDROCHLOROTHIAZIDE [Concomitant]
  6. ALPRAZOLAM [Concomitant]
  7. ANDROGEL [Concomitant]

REACTIONS (2)
  - BLOOD GLUCOSE INCREASED [None]
  - BLOOD PRESSURE DIASTOLIC INCREASED [None]
